FAERS Safety Report 16790998 (Version 1)
Quarter: 2019Q4

REPORT INFORMATION
  Report Type: Spontaneous
  Country: US (occurrence: US)
  Receive Date: 20190909
  Receipt Date: 20190909
  Transmission Date: 20200122
  Serious: No
  Sender: FDA-Public Use
  Company Number: None

PATIENT
  Age: 59 Year
  Sex: Male
  Weight: 108.9 kg

DRUGS (4)
  1. BRAFTOVI [Suspect]
     Active Substance: ENCORAFENIB
     Indication: METASTASES TO LUNG
     Route: 048
     Dates: start: 20181003
  2. BRAFTOVI [Suspect]
     Active Substance: ENCORAFENIB
     Indication: MALIGNANT MELANOMA
     Route: 048
     Dates: start: 20181003
  3. MEKTOVI [Suspect]
     Active Substance: BINIMETINIB
     Indication: MALIGNANT MELANOMA
     Route: 048
     Dates: start: 20181003
  4. MEKTOVI [Suspect]
     Active Substance: BINIMETINIB
     Indication: METASTASES TO LUNG
     Route: 048
     Dates: start: 20181003

REACTIONS (6)
  - Renal tubular injury [None]
  - Renal tubular atrophy [None]
  - Tubulointerstitial nephritis [None]
  - Kidney fibrosis [None]
  - Glomerulonephropathy [None]
  - Glomerulosclerosis [None]

NARRATIVE: CASE EVENT DATE: 20181024
